FAERS Safety Report 5339991-3 (Version None)
Quarter: 2007Q2

REPORT INFORMATION
  Report Type: 
  Country: None (occurrence: None)
  Receive Date: 20070531
  Receipt Date: 20070522
  Transmission Date: 20071010
  Serious: Yes (Hospitalization, Other)
  Sender: FDA-Public Use
  Company Number: US-ROCHE-498874

PATIENT
  Age: 65 Year
  Sex: Male

DRUGS (4)
  1. PEGASYS [Suspect]
     Route: 065
     Dates: start: 20030101, end: 20040201
  2. COPEGUS [Suspect]
     Dosage: THE PATIENT TOOK COPEGUS ^PILLS.^
     Route: 048
     Dates: start: 20030101, end: 20040201
  3. CELLCEPT [Interacting]
     Indication: LIVER TRANSPLANT
     Dosage: THE PATIENT TOOK 1 CELLCEPT ^PILL^ 4 TIMES A DAY.
     Route: 048
  4. UNSPECIFIED MEDICATIONS [Interacting]
     Dosage: THE PATIENT WAS TAKING 2 OTHER UNSPECIFIED MEDICATIONS THAT WERE NOT MANUFACTURED BY ROCHE.
     Route: 065

REACTIONS (11)
  - ALOPECIA [None]
  - DRUG INTERACTION [None]
  - DYSPEPSIA [None]
  - FATIGUE [None]
  - INVESTIGATION ABNORMAL [None]
  - LIVER TRANSPLANT [None]
  - MALAISE [None]
  - OCULAR ICTERUS [None]
  - RENAL FAILURE [None]
  - WEIGHT DECREASED [None]
  - YELLOW SKIN [None]
